FAERS Safety Report 16249885 (Version 1)
Quarter: 2019Q2

REPORT INFORMATION
  Report Type: Spontaneous
  Country: US (occurrence: US)
  Receive Date: 20190428
  Receipt Date: 20190428
  Transmission Date: 20190711
  Serious: Yes (Other)
  Sender: FDA-Public Use
  Company Number: None

PATIENT
  Age: 78 Year
  Sex: Female
  Weight: 76.2 kg

DRUGS (7)
  1. REPATHA [Suspect]
     Active Substance: EVOLOCUMAB
  2. NUVARING [Concomitant]
     Active Substance: ETHINYL ESTRADIOL\ETONOGESTREL
  3. LEVOTHYROXIN [Concomitant]
     Active Substance: LEVOTHYROXINE
  4. OMEPRAZOLE. [Concomitant]
     Active Substance: OMEPRAZOLE
  5. HYDROLCHLOROL [Concomitant]
  6. AMLODIPINE [Concomitant]
     Active Substance: AMLODIPINE BESYLATE
  7. WOMEN^S DAILY MULTI VITAMIN [Concomitant]

REACTIONS (2)
  - Drug hypersensitivity [None]
  - Hypersensitivity [None]

NARRATIVE: CASE EVENT DATE: 20190327
